FAERS Safety Report 5534006-6 (Version None)
Quarter: 2007Q4

REPORT INFORMATION
  Report Type: 
  Country: None (occurrence: None)
  Receive Date: 20071130
  Receipt Date: 20071116
  Transmission Date: 20080405
  Serious: Yes (Death)
  Sender: FDA-Public Use
  Company Number: 2007-GWUS-0635

PATIENT
  Sex: Male

DRUGS (2)
  1. ALDARA [Suspect]
     Indication: BASAL CELL CARCINOMA
     Dosage: TOPICAL
     Route: 061
  2. ALDARA [Suspect]
     Indication: BIOPSY
     Dosage: TOPICAL
     Route: 061

REACTIONS (5)
  - ADVERSE DRUG REACTION [None]
  - APPLICATION SITE ERYTHEMA [None]
  - APPLICATION SITE SCAB [None]
  - INCORRECT DOSE ADMINISTERED [None]
  - WRONG TECHNIQUE IN DRUG USAGE PROCESS [None]
